FAERS Safety Report 4813594-9 (Version None)
Quarter: 2005Q4

REPORT INFORMATION
  Report Type: 
  Country: None (occurrence: None)
  Receive Date: 20051028
  Receipt Date: 20050301
  Transmission Date: 20060501
  Serious: No
  Sender: FDA-Public Use
  Company Number: US-GLAXOSMITHKLINE-A0547784A

PATIENT
  Age: 44 Year
  Sex: Female
  Weight: 110.5 kg

DRUGS (4)
  1. ADVAIR DISKUS 100/50 [Suspect]
     Indication: ASTHMA
     Dosage: 1PUFF TWICE PER DAY
     Route: 055
  2. ZOCOR [Concomitant]
  3. MULTI-VITAMIN [Concomitant]
  4. CALCIUM GLUCONATE [Concomitant]

REACTIONS (3)
  - CHEST DISCOMFORT [None]
  - PHARMACEUTICAL PRODUCT COMPLAINT [None]
  - WHEEZING [None]
